FAERS Safety Report 18654858 (Version 3)
Quarter: 2020Q4

REPORT INFORMATION
  Report Type: Spontaneous
  Country: TN (occurrence: TN)
  Receive Date: 20201223
  Receipt Date: 20201230
  Transmission Date: 20210114
  Serious: Yes (Death, Other)
  Sender: FDA-Public Use
  Company Number: TN-PFIZER INC-2020499996

PATIENT
  Age: 26 Year
  Sex: Female

DRUGS (4)
  1. METHYLPREDNISOLONE SODIUM SUCCINATE. [Suspect]
     Active Substance: METHYLPREDNISOLONE SODIUM SUCCINATE
     Indication: VOGT-KOYANAGI-HARADA DISEASE
     Dosage: 1000 MG, DAILY
     Route: 042
  2. PREDNISONE. [Suspect]
     Active Substance: PREDNISONE
     Indication: VOGT-KOYANAGI-HARADA DISEASE
     Dosage: 2 MG/KG, DAILY
     Route: 048
  3. LEFLUNOMIDE. [Concomitant]
     Active Substance: LEFLUNOMIDE
     Indication: RHEUMATOID ARTHRITIS
     Dosage: 20 MG, DAILY
  4. AZATHIOPRINE. [Suspect]
     Active Substance: AZATHIOPRINE
     Indication: VOGT-KOYANAGI-HARADA DISEASE
     Dosage: 150 MG, DAILY
     Dates: start: 2018

REACTIONS (4)
  - Off label use [Unknown]
  - Infection [Fatal]
  - Septic shock [Fatal]
  - Fournier^s gangrene [Fatal]

NARRATIVE: CASE EVENT DATE: 201810
